FAERS Safety Report 8431892-7 (Version None)
Quarter: 2012Q2

REPORT INFORMATION
  Report Type: 
  Country: None (occurrence: None)
  Receive Date: 20120607
  Receipt Date: 20120607
  Transmission Date: 20120825
  Serious: Yes (Hospitalization)
  Sender: FDA-Public Use
  Company Number: None

PATIENT
  Sex: Male
  Weight: 69.9 kg

DRUGS (2)
  1. RITUXAN [Suspect]
  2. RITUXAN [Suspect]
     Indication: NON-HODGKIN'S LYMPHOMA
     Dosage: 682 MG, X 1, IV DRIP
     Route: 041
     Dates: start: 20120605, end: 20120605

REACTIONS (2)
  - NAUSEA [None]
  - BLOOD PRESSURE DECREASED [None]
